FAERS Safety Report 9732454 (Version 3)
Quarter: 2014Q1

REPORT INFORMATION
  Report Type: Spontaneous
  Country: US (occurrence: US)
  Receive Date: 20131205
  Receipt Date: 20140128
  Transmission Date: 20141002
  Serious: No
  Sender: FDA-Public Use
  Company Number: US-PFIZER INC-2013344849

PATIENT
  Sex: Female

DRUGS (3)
  1. HEPARIN SODIUM [Suspect]
     Dosage: UNK
  2. BETADINE [Suspect]
     Dosage: UNK
  3. IODINE [Suspect]
     Dosage: UNK

REACTIONS (1)
  - Drug hypersensitivity [Unknown]
